FAERS Safety Report 5758758-5 (Version None)
Quarter: 2008Q2

REPORT INFORMATION
  Report Type: 
  Country: None (occurrence: None)
  Receive Date: 20080604
  Receipt Date: 20080527
  Transmission Date: 20081010
  Serious: Yes (Other)
  Sender: FDA-Public Use
  Company Number: NL-ABBOTT-08P-114-0453509-00

PATIENT
  Age: 56 Year
  Sex: Female

DRUGS (1)
  1. VALPROIC ACID [Suspect]
     Indication: TEMPORAL LOBE EPILEPSY
     Dosage: NOT REPORTED
     Route: 065

REACTIONS (1)
  - OSTEOPENIA [None]
